FAERS Safety Report 23338579 (Version 1)
Quarter: 2023Q4

REPORT INFORMATION
  Report Type: Spontaneous
  Country: JP (occurrence: JP)
  Receive Date: 20231226
  Receipt Date: 20231226
  Transmission Date: 20240109
  Serious: Yes (Other)
  Sender: FDA-Public Use
  Company Number: JP-ELI_LILLY_AND_COMPANY-JP202312013481

PATIENT

DRUGS (1)
  1. NECITUMUMAB [Suspect]
     Active Substance: NECITUMUMAB
     Indication: Product used for unknown indication
     Route: 041

REACTIONS (3)
  - Decreased appetite [Unknown]
  - Malignant neoplasm progression [Unknown]
  - Nausea [Unknown]
